FAERS Safety Report 7260489-X (Version None)
Quarter: 2011Q1

REPORT INFORMATION
  Report Type: 
  Country: None (occurrence: None)
  Receive Date: 20110130
  Receipt Date: 20101104
  Transmission Date: 20110831
  Serious: No
  Sender: FDA-Public Use
  Company Number: US-ABBOTT-10P-163-0684559-00

PATIENT
  Sex: Female
  Weight: 123.03 kg

DRUGS (2)
  1. METHOTREXATE [Concomitant]
     Indication: PSORIATIC ARTHROPATHY
  2. HUMIRA [Suspect]
     Indication: PSORIATIC ARTHROPATHY
     Route: 058
     Dates: start: 20100812, end: 20101104

REACTIONS (4)
  - INJECTION SITE PRURITUS [None]
  - INJECTION SITE PAPULE [None]
  - INJECTION SITE REACTION [None]
  - INJECTION SITE ERYTHEMA [None]
